FAERS Safety Report 22055610 (Version 1)
Quarter: 2023Q1

REPORT INFORMATION
  Report Type: Report from Study
  Country: CL (occurrence: CL)
  Receive Date: 20230302
  Receipt Date: 20230302
  Transmission Date: 20230418
  Serious: Yes (Hospitalization, Other)
  Sender: FDA-Public Use
  Company Number: CL-002147023-NVSC2023CL045245

PATIENT
  Age: 14 Year
  Sex: Male
  Weight: 24 kg

DRUGS (1)
  1. OMNITROPE [Suspect]
     Active Substance: SOMATROPIN
     Indication: Product used for unknown indication
     Dosage: 2.1 IU, QD
     Route: 058
     Dates: start: 20200517

REACTIONS (8)
  - Diabetes insipidus [Recovered/Resolved]
  - Gastrointestinal bacterial overgrowth [Recovered/Resolved]
  - Diabetic metabolic decompensation [Recovered/Resolved]
  - Blood sodium decreased [Recovered/Resolved]
  - Seizure [Unknown]
  - Food allergy [Unknown]
  - Dysphagia [Unknown]
  - Device mechanical issue [Unknown]

NARRATIVE: CASE EVENT DATE: 20221101
